FAERS Safety Report 10731863 (Version 2)
Quarter: 2015Q3

REPORT INFORMATION
  Report Type: Spontaneous
  Country: BE (occurrence: BE)
  Receive Date: 20150120
  Receipt Date: 20150820
  Transmission Date: 20151125
  Serious: Yes (Death)
  Sender: FDA-Public Use
  Company Number: 2702185

PATIENT
  Age: 80 Year
  Sex: Male

DRUGS (1)
  1. DEXDOR [Suspect]
     Active Substance: DEXMEDETOMIDINE HYDROCHLORIDE
     Indication: MECHANICAL VENTILATION
     Dosage: 0.2
     Route: 042
     Dates: start: 20150104, end: 20150104

REACTIONS (4)
  - Hypotension [Unknown]
  - Bradycardia [Unknown]
  - Pulseless electrical activity [Fatal]
  - Muscle spasticity [Unknown]

NARRATIVE: CASE EVENT DATE: 20150104
